FAERS Safety Report 23261626 (Version 1)
Quarter: 2023Q4

REPORT INFORMATION
  Report Type: Spontaneous
  Country: GR (occurrence: GR)
  Receive Date: 20231205
  Receipt Date: 20231205
  Transmission Date: 20240109
  Serious: Yes (Hospitalization, Other)
  Sender: FDA-Public Use
  Company Number: GR-STRIDES ARCOLAB LIMITED-2023SP017916

PATIENT
  Age: 55 Day
  Sex: Female

DRUGS (5)
  1. PREDNISOLONE [Suspect]
     Active Substance: PREDNISOLONE
     Indication: Hypercalcaemia
     Dosage: 0.5 MILLIGRAM/KILOGRAM
     Route: 048
  2. FUROSEMIDE [Suspect]
     Active Substance: FUROSEMIDE
     Indication: Hypercalcaemia
     Dosage: 2 MILLIGRAM/KILOGRAM
     Route: 065
  3. FUROSEMIDE [Suspect]
     Active Substance: FUROSEMIDE
     Dosage: UNK (TAPERED DOSE)
     Route: 065
  4. METHYLPREDNISOLONE [Suspect]
     Active Substance: METHYLPREDNISOLONE
     Indication: Hypercalcaemia
     Dosage: 2 MILLIGRAM/KILOGRAM
     Route: 042
  5. METHYLPREDNISOLONE [Suspect]
     Active Substance: METHYLPREDNISOLONE
     Dosage: UNK (TAPERED DOSE)
     Route: 065

REACTIONS (6)
  - Vesicoureteric reflux [Unknown]
  - Nephrocalcinosis [Not Recovered/Not Resolved]
  - Hypercalciuria [Unknown]
  - Urinary tract infection [Unknown]
  - Treatment failure [Unknown]
  - Off label use [Unknown]
